FAERS Safety Report 6378672-4 (Version None)
Quarter: 2009Q3

REPORT INFORMATION
  Report Type: 
  Country: None (occurrence: None)
  Receive Date: 20090923
  Receipt Date: 20090910
  Transmission Date: 20100115
  Serious: Yes (Death, Hospitalization)
  Sender: FDA-Public Use
  Company Number: 2009AL002412

PATIENT
  Age: 76 Year
  Sex: Female

DRUGS (28)
  1. DIGOXIN [Suspect]
     Indication: CARDIAC FAILURE CONGESTIVE
     Dosage: 0.125MG, PO
     Route: 048
     Dates: start: 20050101, end: 20080501
  2. CRYPHEPTADINE [Concomitant]
  3. METOPROLOL [Concomitant]
  4. LEVOTHYROXINE SODIUM [Concomitant]
  5. LEVAQUIN [Concomitant]
  6. EXELON [Concomitant]
  7. KLOR-CON [Concomitant]
  8. FLORINEF [Concomitant]
  9. LORAZEPAM [Concomitant]
  10. PLAVIX [Concomitant]
  11. CALCITRIOL [Concomitant]
  12. MEGACE [Concomitant]
  13. DYAZIDE [Concomitant]
  14. LOTREL [Concomitant]
  15. PAXIL [Concomitant]
  16. URSODIOL [Concomitant]
  17. CHOLESTYRAMINE [Concomitant]
  18. WELLBUTRIN [Concomitant]
  19. ADVENT [Concomitant]
  20. ASPIRIN [Concomitant]
  21. LEVBID [Concomitant]
  22. SYNTHROID [Concomitant]
  23. RISPERDAL [Concomitant]
  24. PROZAC [Concomitant]
  25. MAXZIDE [Concomitant]
  26. HYDROCHLOROTHIAZIDE [Concomitant]
  27. POTASSIUM CHLORIDE [Concomitant]
  28. VISTARIL [Concomitant]

REACTIONS (17)
  - ASTHENIA [None]
  - ATELECTASIS [None]
  - CAROTID ARTERY STENOSIS [None]
  - CEREBRAL ISCHAEMIA [None]
  - DECREASED APPETITE [None]
  - DEHYDRATION [None]
  - DIARRHOEA [None]
  - DISEASE RECURRENCE [None]
  - DIZZINESS [None]
  - FAILURE TO THRIVE [None]
  - HYPOGLYCAEMIA [None]
  - HYPOKALAEMIA [None]
  - KIDNEY SMALL [None]
  - MITRAL VALVE INCOMPETENCE [None]
  - RENAL FAILURE [None]
  - SPINAL OSTEOARTHRITIS [None]
  - TRICUSPID VALVE INCOMPETENCE [None]
